FAERS Safety Report 7964731-9 (Version None)
Quarter: 2011Q4

REPORT INFORMATION
  Report Type: 
  Country: None (occurrence: None)
  Receive Date: 20111208
  Receipt Date: 20111128
  Transmission Date: 20120403
  Serious: Yes (Hospitalization, Other)
  Sender: FDA-Public Use
  Company Number: CA-ELI_LILLY_AND_COMPANY-CA201111008228

PATIENT
  Sex: Male

DRUGS (13)
  1. ZYPREXA [Suspect]
     Dosage: 7.5 MG, EACH EVENING
     Route: 048
  2. ZYPREXA [Suspect]
     Dosage: 10 MG, UNKNOWN
     Dates: start: 20041204
  3. ZYPREXA [Suspect]
     Dosage: 12.5 MG, QD
  4. LITHIUM [Concomitant]
  5. ZYPREXA [Suspect]
     Indication: BIPOLAR DISORDER
     Dosage: 2.5 MG, EACH EVENING
     Route: 048
  6. CLONAZEPAM [Concomitant]
  7. ZYPREXA [Suspect]
     Dosage: 5 MG, EACH EVENING
     Route: 048
  8. BENZTROPINE MESYLATE [Concomitant]
  9. ATIVAN [Concomitant]
  10. ZYPREXA [Suspect]
     Dosage: 2.5 MG, EACH MORNING
     Route: 048
  11. ZYPREXA [Suspect]
     Dosage: 3.75 MG, EACH EVENING
     Route: 048
  12. RISPERIDONE [Concomitant]
  13. SEROQUEL [Concomitant]

REACTIONS (11)
  - OESOPHAGITIS [None]
  - LOW DENSITY LIPOPROTEIN INCREASED [None]
  - PEPTIC ULCER [None]
  - WEIGHT INCREASED [None]
  - GLUCOSE TOLERANCE IMPAIRED [None]
  - GASTRITIS [None]
  - DIABETES MELLITUS [None]
  - BLOOD CHOLESTEROL INCREASED [None]
  - OFF LABEL USE [None]
  - MOVEMENT DISORDER [None]
  - INCREASED APPETITE [None]
